FAERS Safety Report 22256265 (Version 1)
Quarter: 2023Q2

REPORT INFORMATION
  Report Type: Spontaneous
  Country: US (occurrence: None)
  Receive Date: 20230426
  Receipt Date: 20230426
  Transmission Date: 20230721
  Serious: No
  Sender: FDA-Public Use
  Company Number: None

PATIENT
  Sex: 0

DRUGS (1)
  1. LEVOTHYROXINE [Suspect]
     Active Substance: LEVOTHYROXINE

REACTIONS (5)
  - Depression [None]
  - Lethargy [None]
  - Somnolence [None]
  - Blood thyroid stimulating hormone decreased [None]
  - Blood thyroid stimulating hormone increased [None]
